FAERS Safety Report 5953032-6 (Version None)
Quarter: 2008Q4

REPORT INFORMATION
  Report Type: 
  Country: None (occurrence: None)
  Receive Date: 20081114
  Receipt Date: 20080908
  Transmission Date: 20090506
  Serious: No
  Sender: FDA-Public Use
  Company Number: US-BRISTOL-MYERS SQUIBB COMPANY-14327670

PATIENT
  Sex: Female

DRUGS (10)
  1. IXEMPRA KIT [Suspect]
     Indication: BREAST CANCER
     Route: 042
     Dates: start: 20080904
  2. ZANTAC [Concomitant]
     Indication: PREMEDICATION
  3. BENADRYL [Concomitant]
     Indication: PREMEDICATION
  4. DEXAMETHASONE 0.5MG TAB [Concomitant]
     Indication: PREMEDICATION
  5. CISPLATIN [Concomitant]
  6. GEMZAR [Concomitant]
  7. AVASTIN [Concomitant]
  8. XELODA [Concomitant]
  9. ANZEMET [Concomitant]
     Indication: PROPHYLAXIS OF NAUSEA AND VOMITING
  10. EMEND [Concomitant]
     Indication: PROPHYLAXIS OF NAUSEA AND VOMITING

REACTIONS (1)
  - RASH ERYTHEMATOUS [None]
